FAERS Safety Report 10163043 (Version 1)
Quarter: 2014Q2

REPORT INFORMATION
  Report Type: Spontaneous
  Country: DE (occurrence: DE)
  Receive Date: 20140509
  Receipt Date: 20140509
  Transmission Date: 20141212
  Serious: Yes (Other)
  Sender: FDA-Public Use
  Company Number: GXKR2014DE001813

PATIENT
  Sex: 0

DRUGS (4)
  1. THIAMAZOLE [Suspect]
     Indication: HYPERTHYROIDISM
     Dosage: 10 [MG/D ]
     Route: 048
     Dates: start: 20130425, end: 20130710
  2. VIGAMOX [Concomitant]
     Indication: CONJUNCTIVITIS
     Dosage: MAYBE A FEW DAYS LONGER,  THREE DROPS EACH EYE
     Route: 047
     Dates: start: 20130329, end: 20130402
  3. SINUPRET [Concomitant]
     Indication: NASOPHARYNGITIS
     Dosage: MAYBE A FEW DAYS LONGER
     Route: 048
     Dates: start: 20130329, end: 20130402
  4. ALTHAEA OFFICINALIS ROOT [Concomitant]
     Indication: NASOPHARYNGITIS
     Route: 048
     Dates: start: 20130329, end: 20130402

REACTIONS (1)
  - Abortion late [Recovered/Resolved]
